FAERS Safety Report 10586754 (Version 3)
Quarter: 2014Q4

REPORT INFORMATION
  Report Type: Spontaneous
  Country: AU (occurrence: AU)
  Receive Date: 20141117
  Receipt Date: 20141125
  Transmission Date: 20150529
  Serious: Yes (Other)
  Sender: FDA-Public Use
  Company Number: AU-GLAXOSMITHKLINE-AU2014GSK018119

PATIENT
  Sex: Female

DRUGS (1)
  1. ASMOL [Suspect]
     Active Substance: ALBUTEROL SULFATE
     Indication: ASTHMA

REACTIONS (3)
  - Asthma [Not Recovered/Not Resolved]
  - Product quality issue [Unknown]
  - Device failure [Unknown]
